FAERS Safety Report 23940292 (Version 2)
Quarter: 2024Q2

REPORT INFORMATION
  Report Type: Spontaneous
  Country: JP (occurrence: JP)
  Receive Date: 20240605
  Receipt Date: 20240618
  Transmission Date: 20240716
  Serious: Yes (Hospitalization)
  Sender: FDA-Public Use
  Company Number: JP-TEVA-VS-3203699

PATIENT
  Age: 64 Year
  Sex: Male

DRUGS (2)
  1. LANSOPRAZOLE [Suspect]
     Active Substance: LANSOPRAZOLE
     Indication: Prophylaxis against gastrointestinal ulcer
     Route: 065
  2. METHOTREXATE [Suspect]
     Active Substance: METHOTREXATE
     Indication: Rheumatoid arthritis
     Route: 065

REACTIONS (6)
  - Gastric polyps [Recovering/Resolving]
  - Anaemia [Unknown]
  - Portal hypertensive gastropathy [Unknown]
  - Hepatic fibrosis [Recovering/Resolving]
  - Hypoproteinaemia [Unknown]
  - Haemorrhage [Unknown]
